FAERS Safety Report 4715152-3 (Version None)
Quarter: 2005Q3

REPORT INFORMATION
  Report Type: 
  Country: None (occurrence: None)
  Receive Date: 20050715
  Receipt Date: 20050624
  Transmission Date: 20060218
  Serious: Yes (Other)
  Sender: FDA-Public Use
  Company Number: J200502076

PATIENT
  Age: 28 Year
  Sex: Female

DRUGS (2)
  1. AMOXICILLIN [Suspect]
     Indication: PERICORONITIS
     Dosage: 250MG THREE TIMES PER DAY
     Route: 048
     Dates: start: 20050618, end: 20050618
  2. LOXOPROFEN SODIUM [Concomitant]
     Indication: PERICORONITIS
     Dosage: 60MG THREE TIMES PER DAY
     Route: 048
     Dates: start: 20050618, end: 20050618

REACTIONS (4)
  - DRUG HYPERSENSITIVITY [None]
  - EYELID DISORDER [None]
  - STEVENS-JOHNSON SYNDROME [None]
  - SWELLING FACE [None]
